FAERS Safety Report 12758425 (Version 1)
Quarter: 2016Q3

REPORT INFORMATION
  Report Type: Spontaneous
  Country: US (occurrence: US)
  Receive Date: 20160917
  Receipt Date: 20160917
  Transmission Date: 20161109
  Serious: Yes (Other)
  Sender: FDA-Public Use
  Company Number: None

PATIENT
  Age: 63 Year
  Sex: Female
  Weight: 65.25 kg

DRUGS (13)
  1. ESCITALOPRAM [Concomitant]
     Active Substance: ESCITALOPRAM OXALATE
  2. VITAMIN B12 [Concomitant]
     Active Substance: CYANOCOBALAMIN
  3. GABAPENTIN. [Concomitant]
     Active Substance: GABAPENTIN
  4. AMLODIPINE [Concomitant]
     Active Substance: AMLODIPINE BESYLATE
  5. PROPRANOLOL [Concomitant]
     Active Substance: PROPRANOLOL\PROPRANOLOL HYDROCHLORIDE
  6. MAGNESIUM [Concomitant]
     Active Substance: MAGNESIUM
  7. QUETIAPINE. [Concomitant]
     Active Substance: QUETIAPINE
  8. SIMVASTATIN. [Concomitant]
     Active Substance: SIMVASTATIN
  9. BUPROPION HCL SR 150 MG TAB RDS [Suspect]
     Active Substance: BUPROPION HYDROCHLORIDE
     Indication: SMOKING CESSATION THERAPY
     Route: 048
     Dates: start: 20160808, end: 20160916
  10. WOMEN^S ONE A DAY [Concomitant]
  11. CLONAZEPAM. [Concomitant]
     Active Substance: CLONAZEPAM
  12. FISH OIL [Concomitant]
     Active Substance: FISH OIL
  13. PROBIOTICS [Concomitant]
     Active Substance: PROBIOTICS NOS

REACTIONS (3)
  - Hyperhidrosis [None]
  - Body temperature increased [None]
  - Headache [None]

NARRATIVE: CASE EVENT DATE: 20160815
